FAERS Safety Report 8136089-6 (Version None)
Quarter: 2012Q1

REPORT INFORMATION
  Report Type: 
  Country: None (occurrence: None)
  Receive Date: 20120214
  Receipt Date: 20120206
  Transmission Date: 20120608
  Serious: Yes (Hospitalization, Other)
  Sender: FDA-Public Use
  Company Number: US-ABBOTT-12P-163-0901956-00

PATIENT
  Sex: Female
  Weight: 90.8 kg

DRUGS (15)
  1. HUMIRA [Suspect]
     Indication: CROHN'S DISEASE
  2. HUMIRA [Suspect]
     Indication: CROHN'S DISEASE
     Dates: end: 20110701
  3. TOPAMAX [Concomitant]
     Indication: RESTLESS LEGS SYNDROME
  4. PAXIL [Concomitant]
     Indication: DEPRESSION
  5. METHOTREXATE [Concomitant]
     Indication: CROHN'S DISEASE
  6. PREVACID [Concomitant]
     Indication: GASTROOESOPHAGEAL REFLUX DISEASE
  7. COSAMINE DS [Concomitant]
     Indication: BONE DISORDER
  8. CARAFATE [Concomitant]
     Indication: GASTRIC ULCER
  9. RESTASIS [Concomitant]
     Indication: DRY EYE
  10. MULTI-VITAMIN [Concomitant]
     Indication: VITAMIN SUPPLEMENTATION
  11. HUMIRA [Suspect]
     Indication: ARTHRITIS ENTEROPATHIC
     Dates: start: 20120101
  12. VOLTAREN [Concomitant]
     Indication: ARTHRALGIA
     Dosage: GEL
  13. FOLIC ACID [Concomitant]
     Indication: VITAMIN SUPPLEMENTATION
  14. LISINOPRIL [Concomitant]
     Indication: HYPERTENSION
  15. HUMIRA [Suspect]
     Indication: ARTHRITIS ENTEROPATHIC

REACTIONS (10)
  - SPINAL OSTEOARTHRITIS [None]
  - BREAST NECROSIS [None]
  - FIBROMYALGIA [None]
  - BREAST INFECTION [None]
  - UVEITIS [None]
  - BACK PAIN [None]
  - OFF LABEL USE [None]
  - BREAST ENLARGEMENT [None]
  - IRITIS [None]
  - HYPERKERATOSIS [None]
